FAERS Safety Report 6444885-6 (Version None)
Quarter: 2009Q4

REPORT INFORMATION
  Report Type: 
  Country: None (occurrence: None)
  Receive Date: 20091118
  Receipt Date: 20091110
  Transmission Date: 20100525
  Serious: Yes (Other)
  Sender: FDA-Public Use
  Company Number: GXKR2009FI12446

PATIENT
  Sex: Female

DRUGS (2)
  1. ENALAPRIL SANDOZ (NGX) [Suspect]
     Indication: CORONARY ARTERY DISEASE
     Dosage: 5 MG/DAY
     Route: 048
     Dates: start: 20091020, end: 20091027
  2. PROPRAL [Concomitant]
     Dosage: 80 MG, QD
     Route: 065
     Dates: start: 19800101

REACTIONS (1)
  - SKIN DISCOLOURATION [None]
